FAERS Safety Report 7335237-5 (Version None)
Quarter: 2011Q1

REPORT INFORMATION
  Report Type: 
  Country: None (occurrence: None)
  Receive Date: 20110307
  Receipt Date: 20110304
  Transmission Date: 20110831
  Serious: No
  Sender: FDA-Public Use
  Company Number: US-PFIZER INC-2011019084

PATIENT
  Sex: Female
  Weight: 72.56 kg

DRUGS (2)
  1. HYDROCODONE [Concomitant]
     Dosage: UNK
  2. LYRICA [Suspect]
     Indication: ARTHRALGIA
     Dosage: 75 MG, 2X/DAY
     Route: 048
     Dates: start: 20110125, end: 20110126

REACTIONS (3)
  - VISION BLURRED [None]
  - DIZZINESS [None]
  - SPEECH DISORDER [None]
